FAERS Safety Report 9744657 (Version 2)
Quarter: 2013Q4

REPORT INFORMATION
  Report Type: Report from Study
  Country: US (occurrence: US)
  Receive Date: 20131210
  Receipt Date: 20131220
  Transmission Date: 20140711
  Serious: Yes (Hospitalization)
  Sender: FDA-Public Use
  Company Number: US-ABBVIE-13P-163-1177235-00

PATIENT
  Sex: Female
  Weight: 59.5 kg

DRUGS (6)
  1. HUMIRA [Suspect]
     Indication: COLITIS ULCERATIVE
     Dates: start: 20131003
  2. HUMIRA [Suspect]
  3. BUDESONIDE ER [Concomitant]
     Indication: COLITIS ULCERATIVE
  4. FERROUS SULFATE [Concomitant]
     Indication: PRODUCT USED FOR UNKNOWN INDICATION
     Dosage: OVER THE COUNTER
  5. SERTRALINE [Concomitant]
     Indication: DEPRESSION
     Dosage: AT BEDTIME
  6. ACETAMINOPHEN [Concomitant]
     Indication: PAIN
     Dosage: OVER THE COUNTER: 325 MG 2 TABS EVERY 4 HOURS

REACTIONS (7)
  - Haematochezia [Unknown]
  - Asthenia [Unknown]
  - Gastrointestinal disorder [Not Recovered/Not Resolved]
  - Abdominal pain [Unknown]
  - Diarrhoea [Unknown]
  - Vomiting [Unknown]
  - Nausea [Unknown]
